FAERS Safety Report 7515639-4 (Version None)
Quarter: 2011Q2

REPORT INFORMATION
  Report Type: 
  Country: None (occurrence: None)
  Receive Date: 20110601
  Receipt Date: 20100720
  Transmission Date: 20111010
  Serious: Yes (Other)
  Sender: FDA-Public Use
  Company Number: US-PFIZER INC-2010073395

PATIENT
  Sex: Female
  Weight: 108.8 kg

DRUGS (1)
  1. CHANTIX [Suspect]
     Indication: SMOKING CESSATION THERAPY
     Dosage: 0.5 MG, 1X/DAY
     Route: 048
     Dates: start: 20100603, end: 20100605

REACTIONS (7)
  - HYPERSENSITIVITY [None]
  - SWELLING FACE [None]
  - LYMPHADENOPATHY [None]
  - RASH [None]
  - NECK PAIN [None]
  - HEADACHE [None]
  - PYREXIA [None]
